FAERS Safety Report 5154938-0 (Version None)
Quarter: 2006Q4

REPORT INFORMATION
  Report Type: 
  Country: None (occurrence: None)
  Receive Date: 20061121
  Receipt Date: 20061025
  Transmission Date: 20070319
  Serious: Yes (Hospitalization)
  Sender: FDA-Public Use
  Company Number: PHEH2006US13367

PATIENT
  Sex: Female

DRUGS (3)
  1. ENABLEX [Suspect]
     Dosage: UNK, UNK
  2. DIURETICS [Concomitant]
     Dosage: UNK, UNK
  3. DYAZIDE [Concomitant]

REACTIONS (11)
  - BACK PAIN [None]
  - BLADDER CATHETER TEMPORARY [None]
  - BLADDER PAIN [None]
  - BUTTOCK PAIN [None]
  - DYSPNOEA [None]
  - NAUSEA [None]
  - NERVE COMPRESSION [None]
  - PAIN IN EXTREMITY [None]
  - RENAL PAIN [None]
  - URINARY RETENTION [None]
  - VOMITING [None]
